FAERS Safety Report 9119105 (Version 3)
Quarter: 2013Q2

REPORT INFORMATION
  Report Type: Spontaneous
  Country: US (occurrence: US)
  Receive Date: 20130226
  Receipt Date: 20130426
  Transmission Date: 20140414
  Serious: Yes (Other)
  Sender: FDA-Public Use
  Company Number: PHEH2013US004479

PATIENT
  Age: 65 Year
  Sex: Male
  Weight: 69 kg

DRUGS (3)
  1. EVEROLIMUS [Suspect]
     Indication: MALIGNANT NEOPLASM OF ISLETS OF LANGERHANS
     Dosage: UNK
     Route: 048
     Dates: end: 20130221
  2. ANTIHYPERTENSIVE DRUGS [Concomitant]
     Dosage: UNK UKN, UNK
  3. ANTICOAGULANTS [Concomitant]
     Dosage: UNK UKN, UNK

REACTIONS (2)
  - Toxic optic neuropathy [Not Recovered/Not Resolved]
  - Blindness unilateral [Not Recovered/Not Resolved]
